FAERS Safety Report 19404836 (Version 1)
Quarter: 2021Q2

REPORT INFORMATION
  Report Type: Spontaneous
  Country: US (occurrence: US)
  Receive Date: 20210611
  Receipt Date: 20210611
  Transmission Date: 20210717
  Serious: Yes (Other)
  Sender: FDA-Public Use
  Company Number: US-STRIDES ARCOLAB LIMITED-2021SP003867

PATIENT
  Age: 27 Year
  Sex: Female

DRUGS (8)
  1. SODIUM CHLORIDE. [Suspect]
     Active Substance: SODIUM CHLORIDE
     Dosage: ONE MONTH AFTER OPERATION
     Route: 061
  2. SODIUM CHLORIDE. [Suspect]
     Active Substance: SODIUM CHLORIDE
     Indication: KERATOCONUS
     Dosage: UNK
     Route: 061
  3. ALCAFTADINE [Suspect]
     Active Substance: ALCAFTADINE
     Indication: KERATOCONUS
     Dosage: UNK
     Route: 065
  4. DORZOLAMIDE;TIMOLOL [Suspect]
     Active Substance: DORZOLAMIDE\TIMOLOL
     Indication: KERATOCONUS
     Dosage: UNK
     Route: 065
  5. HOMATROPINE [Suspect]
     Active Substance: HOMATROPINE HYDROBROMIDE
     Dosage: UNK
     Route: 061
  6. PREDNISOLONE. [Suspect]
     Active Substance: PREDNISOLONE
     Indication: KERATOCONUS
     Dosage: UNK
     Route: 065
  7. BRIMONIDINE;TIMOLOL [Suspect]
     Active Substance: BRIMONIDINE TARTRATE\TIMOLOL MALEATE
     Indication: KERATOCONUS
     Dosage: UNK
     Route: 065
  8. HOMATROPINE [Suspect]
     Active Substance: HOMATROPINE HYDROBROMIDE
     Indication: KERATOCONUS
     Dosage: UNK
     Route: 065

REACTIONS (1)
  - Drug ineffective [Unknown]
